FAERS Safety Report 4333009-7 (Version None)
Quarter: 2004Q2

REPORT INFORMATION
  Report Type: 
  Country: None (occurrence: None)
  Receive Date: 20040406
  Receipt Date: 20040212
  Transmission Date: 20050107
  Serious: Yes (Death, Life-Threatening, Other)
  Sender: FDA-Public Use
  Company Number: PHBS2004JP02074

PATIENT
  Age: 77 Year
  Sex: Female

DRUGS (4)
  1. GLEEVEC [Suspect]
     Indication: GASTROINTESTINAL STROMAL TUMOUR
     Dosage: 300 MG, QD
     Route: 048
     Dates: start: 20040124, end: 20040129
  2. TAKEPRON [Concomitant]
     Dosage: 30 MG/D
     Route: 048
     Dates: start: 20040107, end: 20040212
  3. ALLOID [Concomitant]
     Dosage: 60 ML/D
     Route: 048
     Dates: start: 20040107, end: 20040212
  4. PRIMAXIN [Concomitant]
     Dosage: 2 G/D
     Dates: start: 20040106, end: 20040116

REACTIONS (11)
  - ABDOMINAL PAIN UPPER [None]
  - CHEST PAIN [None]
  - COMA [None]
  - DYSPNOEA [None]
  - GENERALISED OEDEMA [None]
  - HEART RATE INCREASED [None]
  - HYPOTENSION [None]
  - MELAENA [None]
  - PO2 DECREASED [None]
  - TUMOUR HAEMORRHAGE [None]
  - WHEEZING [None]
